FAERS Safety Report 7689560-5 (Version None)
Quarter: 2011Q3

REPORT INFORMATION
  Report Type: 
  Country: None (occurrence: None)
  Receive Date: 20110817
  Receipt Date: 20110811
  Transmission Date: 20111222
  Serious: Yes (Disabling)
  Sender: FDA-Public Use
  Company Number: JP-B.I. PHARMACEUTICALS,INC./RIDGEFIELD-2011-BP-16618NB

PATIENT
  Sex: Male
  Weight: 66.7 kg

DRUGS (16)
  1. SITAGLIPTIN PHOSPHATE [Concomitant]
     Route: 065
  2. ZETIA [Concomitant]
     Indication: LIPIDS ABNORMAL
     Dosage: 10 MG
     Route: 048
     Dates: start: 20090629
  3. VALSARTAN  AND HYDROCHLOROTHIAZIDE [Concomitant]
     Indication: HYPERTENSION
     Route: 048
     Dates: start: 20100827, end: 20110623
  4. PRADAXA [Suspect]
     Indication: ATRIAL FIBRILLATION
     Dosage: 150 MG
     Route: 048
     Dates: start: 20110513, end: 20110623
  5. CILOSTAZOL [Suspect]
     Indication: ANTIPLATELET THERAPY
     Dosage: 100 MG
     Route: 048
     Dates: start: 20110513, end: 20110623
  6. CRESTOR [Concomitant]
     Indication: LIPIDS ABNORMAL
     Dosage: 10 MG
     Route: 048
     Dates: start: 20090108
  7. BROMANOME [Concomitant]
     Route: 065
  8. CALBLOCK [Concomitant]
     Indication: HYPERTENSION
     Dosage: 16 MG
     Route: 048
  9. ZOLPIDEM [Concomitant]
     Indication: INSOMNIA
     Dosage: 10 MG
     Route: 048
     Dates: start: 20070602
  10. AMIODARONE HCL [Concomitant]
     Indication: ARRHYTHMIA
     Dosage: 100 MG
     Route: 048
     Dates: start: 20110218
  11. LASIX [Concomitant]
     Indication: CARDIAC FAILURE
     Dosage: 20 MG
     Route: 048
     Dates: start: 20080615, end: 20110623
  12. BISOPROLOL FUMARATE [Concomitant]
     Indication: HYPERTENSION
     Dosage: 10 MG
     Route: 048
     Dates: start: 20080616
  13. MIGLITOL [Concomitant]
     Indication: DIABETES MELLITUS
     Dosage: 75 MG
     Route: 048
     Dates: start: 20100409
  14. THEO-DUR [Concomitant]
     Indication: ASTHMA
     Dosage: 400 MG
     Route: 065
     Dates: start: 20080212
  15. KREMEZIN [Concomitant]
     Route: 065
  16. PERINDOPRIL ERBUMINE [Concomitant]
     Indication: HYPERTENSION
     Dosage: 8 MG
     Route: 048

REACTIONS (1)
  - RENAL FAILURE [None]
